FAERS Safety Report 5257935-X (Version None)
Quarter: 2007Q1

REPORT INFORMATION
  Report Type: 
  Country: None (occurrence: None)
  Receive Date: 20070307
  Receipt Date: 20061027
  Transmission Date: 20070707
  Serious: No
  Sender: FDA-Public Use
  Company Number: US-GLAXOSMITHKLINE-A0625196A

PATIENT
  Age: 67 Year
  Sex: Female

DRUGS (6)
  1. REQUIP [Suspect]
     Indication: PARKINSON'S DISEASE
     Dosage: .25MG VARIABLE DOSE
     Route: 048
  2. LISINOPRIL [Concomitant]
  3. TOPROL-XL [Concomitant]
  4. LAXATIVE [Concomitant]
  5. FISH OIL [Concomitant]
  6. ASPIRIN [Concomitant]

REACTIONS (1)
  - PAIN [None]
